FAERS Safety Report 5220620-4 (Version None)
Quarter: 2007Q1

REPORT INFORMATION
  Report Type: 
  Country: None (occurrence: None)
  Receive Date: 20070122
  Receipt Date: 20070108
  Transmission Date: 20070707
  Serious: Yes (Other)
  Sender: FDA-Public Use
  Company Number: HQWYE850109JAN07

PATIENT
  Age: 26 Year
  Sex: Female

DRUGS (2)
  1. LEVONORGESTREL + ETHINYL ESTRADIOL [Suspect]
     Indication: ORAL CONTRACEPTION
     Dosage: 1 TABLET, 21D/28D ORAL
     Route: 048
     Dates: start: 20000101, end: 20061025
  2. AMOXICILLIN [Concomitant]

REACTIONS (6)
  - ABDOMINAL PAIN [None]
  - ANTEPARTUM HAEMORRHAGE [None]
  - DRUG INEFFECTIVE [None]
  - PREGNANCY ON ORAL CONTRACEPTIVE [None]
  - UNINTENDED PREGNANCY [None]
  - VOMITING IN PREGNANCY [None]
